FAERS Safety Report 21984083 (Version 1)
Quarter: 2023Q1

REPORT INFORMATION
  Report Type: Spontaneous
  Country: RU (occurrence: None)
  Receive Date: 20230213
  Receipt Date: 20230213
  Transmission Date: 20230417
  Serious: Yes (Other)
  Sender: FDA-Public Use
  Company Number: RU-ROCHE-3282340

PATIENT
  Age: 61 Year
  Sex: Female

DRUGS (7)
  1. RITUXIMAB [Suspect]
     Active Substance: RITUXIMAB
     Indication: Rheumatoid arthritis
     Dosage: SUBSEQUENT ON 2014 TO 2017, FIRST GEBD
     Route: 065
  2. TOCILIZUMAB [Suspect]
     Active Substance: TOCILIZUMAB
     Indication: Rheumatoid arthritis
     Dosage: SECOND GEBD IL-6 INHIBITOR
     Route: 065
     Dates: start: 201806
  3. METHOTREXATE [Suspect]
     Active Substance: METHOTREXATE
     Indication: Rheumatoid arthritis
     Dosage: 10MG WITH ESCALATION TO 15 MG/WEEK, RA FOR THE FIRST TIME
     Route: 065
     Dates: start: 2012
  4. METHOTREXATE [Suspect]
     Active Substance: METHOTREXATE
     Dosage: BACKGROUND THERAPY ADJUSTMENT
     Route: 065
     Dates: start: 2013
  5. METHOTREXATE [Suspect]
     Active Substance: METHOTREXATE
     Dosage: SUBSEQUENT DOSE FROM 2014 TO 2017, 20-25 MG/WEEK, FIRST GEBD
     Route: 065
     Dates: start: 2014
  6. METHOTREXATE [Suspect]
     Active Substance: METHOTREXATE
     Dosage: SECOND GEBD IL-6 INHIBITOR
     Route: 065
     Dates: start: 201806
  7. METHOTREXATE [Suspect]
     Active Substance: METHOTREXATE
     Dosage: WITHIN-GROUP CHANGE IN GEBD IL-6 INHIBITOR
     Route: 065
     Dates: start: 202102

REACTIONS (9)
  - Rheumatoid arthritis [Unknown]
  - Amyotrophy [Unknown]
  - Polyarthritis [Unknown]
  - Chronic kidney disease [Unknown]
  - Quality of life decreased [Unknown]
  - Capillaritis [Unknown]
  - Anaemia [Unknown]
  - Proteinuria [Unknown]
  - Renal amyloidosis [Unknown]

NARRATIVE: CASE EVENT DATE: 20180601
